FAERS Safety Report 13550228 (Version 1)
Quarter: 2017Q2

REPORT INFORMATION
  Report Type: Spontaneous
  Country: US (occurrence: US)
  Receive Date: 20170516
  Receipt Date: 20170516
  Transmission Date: 20170830
  Serious: No
  Sender: FDA-Public Use
  Company Number: US-TEVA-769733ACC

PATIENT
  Sex: Female

DRUGS (1)
  1. PLAN B ONE-STEP [Suspect]
     Active Substance: LEVONORGESTREL
     Indication: POST COITAL CONTRACEPTION
     Dates: start: 20170504, end: 20170504

REACTIONS (4)
  - Vaginal discharge [Unknown]
  - Menstruation delayed [Unknown]
  - Muscle spasms [Unknown]
  - Vaginal haemorrhage [Unknown]
